FAERS Safety Report 10266655 (Version 1)
Quarter: 2014Q2

REPORT INFORMATION
  Report Type: Spontaneous
  Country: US (occurrence: None)
  Receive Date: 20140625
  Receipt Date: 20140625
  Transmission Date: 20141212
  Serious: Yes (Disabling)
  Sender: FDA-Public Use
  Company Number: None

PATIENT
  Age: 52 Year
  Sex: Female
  Weight: 62.6 kg

DRUGS (2)
  1. LEVAQUIN ANTIBIOTIC [Suspect]
     Indication: SINUSITIS
     Dosage: 10  ONCE DAILY TAKEN BY MOUTH
     Route: 048
  2. CIPRO [Suspect]
     Dosage: 10  ONCE DAILY TAKEN BY MOUTH
     Route: 048

REACTIONS (14)
  - Quality of life decreased [None]
  - Ill-defined disorder [None]
  - Paraesthesia [None]
  - Skin burning sensation [None]
  - Myalgia [None]
  - Feeling abnormal [None]
  - Anxiety [None]
  - Panic attack [None]
  - Hyperhidrosis [None]
  - Visual impairment [None]
  - Hearing impaired [None]
  - Palpitations [None]
  - Temperature intolerance [None]
  - Nausea [None]
